FAERS Safety Report 9105570 (Version 1)
Quarter: 2013Q1

REPORT INFORMATION
  Report Type: Spontaneous
  Country: US (occurrence: US)
  Receive Date: 20130221
  Receipt Date: 20130221
  Transmission Date: 20140127
  Serious: No
  Sender: FDA-Public Use
  Company Number: US-ASTRAZENECA-2013SE07472

PATIENT
  Age: 63 Year
  Sex: Female
  Weight: 110.7 kg

DRUGS (7)
  1. ARIMIDEX [Suspect]
     Indication: BREAST CANCER
     Route: 048
     Dates: start: 2009
  2. PRILOSEC OTC [Suspect]
     Route: 048
  3. LIPITOR [Concomitant]
  4. NIASPAN [Concomitant]
  5. SYNTHROID [Concomitant]
  6. ENAPRIL [Concomitant]
  7. MOBIC [Concomitant]

REACTIONS (5)
  - Tinnitus [Unknown]
  - Oropharyngeal pain [Unknown]
  - Vulvovaginal dryness [Unknown]
  - Alopecia [Unknown]
  - Hyperhidrosis [Unknown]
